FAERS Safety Report 8630326 (Version 6)
Quarter: 2014Q1

REPORT INFORMATION
  Report Type: Report from Study
  Country: DE (occurrence: DE)
  Receive Date: 20120622
  Receipt Date: 20140121
  Transmission Date: 20141002
  Serious: Yes (Death, Hospitalization)
  Sender: FDA-Public Use
  Company Number: DE-ROCHE-1077874

PATIENT
  Age: 72 Year
  Sex: Female
  Weight: 53 kg

DRUGS (27)
  1. TRASTUZUMAB [Suspect]
     Indication: ADENOCARCINOMA GASTRIC
     Dosage: LAST DOSE PRIOR TO SAE: 24/MAY/2012
     Route: 042
     Dates: start: 20120524, end: 20120710
  2. TRASTUZUMAB [Suspect]
     Route: 042
     Dates: start: 20120724, end: 20120926
  3. TRASTUZUMAB [Suspect]
     Route: 042
     Dates: start: 20121010
  4. DOCETAXEL [Suspect]
     Indication: ADENOCARCINOMA GASTRIC
     Dosage: LAST DOSE PRIOR TO SAE: 24/MAY/2012
     Route: 042
     Dates: start: 20120524, end: 20120710
  5. DOCETAXEL [Suspect]
     Route: 042
     Dates: start: 20120724, end: 20120926
  6. OXALIPLATIN [Suspect]
     Indication: ADENOCARCINOMA GASTRIC
     Dosage: LAST DOSE PRIOR TO SAE: 24/MAY/2012
     Route: 042
     Dates: start: 20120524, end: 20120710
  7. OXALIPLATIN [Suspect]
     Route: 042
     Dates: start: 20120724, end: 20121010
  8. FLUOROURACIL [Suspect]
     Indication: ADENOCARCINOMA GASTRIC
     Dosage: LAST DOSE PRIOR TO SAE: 25/MAY/2012
     Route: 042
     Dates: start: 20120524, end: 20120710
  9. FLUOROURACIL [Suspect]
     Route: 042
     Dates: start: 20120724, end: 20121010
  10. LEVOTHYROXINE [Concomitant]
     Route: 065
  11. ENALAPRIL [Concomitant]
     Route: 065
  12. SIMVASTATIN [Concomitant]
     Route: 065
  13. NEBIVOLOL [Concomitant]
     Route: 065
  14. MCP DROPS [Concomitant]
     Dosage: DROPS
     Route: 048
  15. GRANISETRON [Concomitant]
     Route: 065
  16. VITAMIN B12 [Concomitant]
     Route: 058
  17. NOVALGIN [Concomitant]
     Route: 048
     Dates: start: 20120604, end: 20120605
  18. LEUCOVORIN [Concomitant]
     Route: 065
     Dates: start: 20120724, end: 20120926
  19. LEUCOVORIN [Concomitant]
     Route: 065
     Dates: start: 20120524
  20. LEUCOVORIN [Concomitant]
     Route: 065
     Dates: start: 20121010
  21. NEUROTRAT FORTE [Concomitant]
     Route: 065
  22. KREON [Concomitant]
     Route: 065
  23. FRESUBIN [Concomitant]
     Route: 065
  24. KALINOR [Concomitant]
     Route: 065
  25. FOSFOMYCIN [Concomitant]
     Route: 065
  26. LOPERAMIDE [Concomitant]
     Route: 065
  27. CAPECITABINE [Concomitant]
     Route: 065
     Dates: start: 20111114, end: 20121205

REACTIONS (21)
  - Pneumonia [Fatal]
  - General physical health deterioration [Fatal]
  - Pyrexia [Recovered/Resolved]
  - Leukopenia [Recovered/Resolved]
  - Urosepsis [Recovered/Resolved]
  - Syncope [Recovered/Resolved]
  - Atrioventricular block [Recovered/Resolved]
  - Weight decreased [Unknown]
  - Hypokalaemia [Recovered/Resolved]
  - General physical health deterioration [Recovered/Resolved]
  - Asthenia [Recovered/Resolved]
  - Gait disturbance [Recovered/Resolved]
  - Cachexia [Unknown]
  - Dehydration [Recovered/Resolved]
  - Dizziness [Unknown]
  - Dehydration [Recovered/Resolved]
  - Renal failure acute [Recovered/Resolved]
  - Urinary tract infection [Recovered/Resolved]
  - Device occlusion [Recovered/Resolved]
  - Dyspnoea [Not Recovered/Not Resolved]
  - Pulmonary oedema [Not Recovered/Not Resolved]
